FAERS Safety Report 16004269 (Version 1)
Quarter: 2019Q1

REPORT INFORMATION
  Report Type: Spontaneous
  Country: ES (occurrence: ES)
  Receive Date: 20190226
  Receipt Date: 20190226
  Transmission Date: 20190418
  Serious: Yes (Other)
  Sender: FDA-Public Use
  Company Number: ES-SA-2019SA046218

PATIENT
  Sex: Female

DRUGS (1)
  1. TOUJEO [Suspect]
     Active Substance: INSULIN GLARGINE
     Indication: DIABETES MELLITUS
     Dosage: 10 UI C/24H,UNITS / ML SOLUTION FOR INJECTION IN PRE-FILLED PEN 3 PENS 1.5 ML
     Route: 058
     Dates: start: 20190117, end: 20190121

REACTIONS (2)
  - Rash papular [Recovered/Resolved]
  - Pruritus [Recovered/Resolved]

NARRATIVE: CASE EVENT DATE: 20190118
